FAERS Safety Report 10073905 (Version 2)
Quarter: 2014Q2

REPORT INFORMATION
  Report Type: Report from Study
  Country: US (occurrence: US)
  Receive Date: 20140412
  Receipt Date: 20140505
  Transmission Date: 20141212
  Serious: Yes (Other)
  Sender: FDA-Public Use
  Company Number: PHEH2014US007249

PATIENT
  Sex: Male

DRUGS (14)
  1. DIOVAN [Suspect]
     Dosage: 80 MG, DAILY
     Route: 048
  2. ASPIRIN [Concomitant]
     Dosage: 81 MG, QD
     Route: 048
  3. ATENOLOL [Concomitant]
     Dosage: 25 MG, QD
     Route: 048
  4. SIMVASTATIN [Concomitant]
     Dosage: 20 MG, QD
     Route: 048
  5. CENTRUM SILVER [Concomitant]
     Dosage: UNK UKN, QD
     Route: 048
  6. TYLENOL EXTRA STRENGTH [Concomitant]
     Dosage: 500 MG, QD
     Route: 048
  7. JANUVIA [Concomitant]
     Dosage: 50 MG, QD
     Route: 048
  8. RANITIDINE HCL [Concomitant]
     Dosage: 300 MG, QD
     Route: 048
  9. VENTOLIN HFA [Concomitant]
     Indication: WHEEZING
     Dosage: UNK UKN, (2 PUFFS EVERY 6 HRS)
     Route: 055
  10. VERAMYST [Concomitant]
     Dosage: 27.5 UG, QD (2 SPRAYS EACH NOSTRIL)
     Route: 045
  11. STARLIX [Concomitant]
     Dosage: 60 MG, QD
     Route: 048
  12. SYNTHROID [Concomitant]
     Dosage: 50 UG, QD
     Route: 048
  13. VITAMIN C [Concomitant]
     Dosage: UNK UKN, QD
     Route: 048
  14. TRIAMCINOLONE ACETONIDE [Concomitant]
     Dosage: UNK UKN, UNK

REACTIONS (10)
  - Diabetes mellitus [Unknown]
  - Cardiomyopathy [Unknown]
  - Spinal column stenosis [Unknown]
  - Hyperlipidaemia [Unknown]
  - Hypothyroidism [Unknown]
  - Osteoarthritis [Unknown]
  - Gastrooesophageal reflux disease [Unknown]
  - Peripheral vascular disorder [Unknown]
  - Rhinitis [Unknown]
  - Hypertension [Unknown]
